FAERS Safety Report 4648838-X (Version None)
Quarter: 2005Q2

REPORT INFORMATION
  Report Type: 
  Country: None (occurrence: None)
  Receive Date: 20050429
  Receipt Date: 20050425
  Transmission Date: 20051028
  Serious: Yes (Other)
  Sender: FDA-Public Use
  Company Number: CA-MERCK-0504CAN00146

PATIENT
  Age: 77 Year
  Sex: Female

DRUGS (1)
  1. VIOXX [Suspect]
     Indication: ARTHRITIS
     Route: 048
     Dates: start: 19990101

REACTIONS (5)
  - ANGINA PECTORIS [None]
  - DRUG INEFFECTIVE [None]
  - FATIGUE [None]
  - MYOCARDIAL INFARCTION [None]
  - WEIGHT DECREASED [None]
